APPROVED DRUG PRODUCT: METOCLOPRAMIDE HYDROCHLORIDE
Active Ingredient: METOCLOPRAMIDE HYDROCHLORIDE
Strength: EQ 5MG BASE/5ML
Dosage Form/Route: SOLUTION;ORAL
Application: A071665 | Product #001
Applicant: PACO RESEARCH CORP
Approved: Dec 5, 1988 | RLD: No | RS: No | Type: DISCN